FAERS Safety Report 8207568-8 (Version None)
Quarter: 2012Q1

REPORT INFORMATION
  Report Type: 
  Country: None (occurrence: None)
  Receive Date: 20120313
  Receipt Date: 20120313
  Transmission Date: 20120608
  Serious: Yes (Hospitalization)
  Sender: FDA-Public Use
  Company Number: None

PATIENT
  Sex: Female

DRUGS (2)
  1. LUCENTIS [Suspect]
     Dates: start: 20120221
  2. LUCENTIS [Suspect]
     Indication: AGE-RELATED MACULAR DEGENERATION
     Dosage: 0.5 MG MONTHY INTRAVITREAL
     Route: 042
     Dates: start: 20120117

REACTIONS (2)
  - BRONCHITIS [None]
  - CARDIAC FAILURE CONGESTIVE [None]
